FAERS Safety Report 6295105-7 (Version None)
Quarter: 2009Q3

REPORT INFORMATION
  Report Type: 
  Country: None (occurrence: None)
  Receive Date: 20090803
  Receipt Date: 20090609
  Transmission Date: 20100115
  Serious: Yes (Hospitalization, Other)
  Sender: FDA-Public Use
  Company Number: US-PURDUE-USA-2009-0039025

PATIENT
  Sex: Female

DRUGS (4)
  1. OXYCONTIN [Suspect]
     Indication: PAIN MANAGEMENT
     Dosage: 40 MG, TID
     Route: 048
     Dates: start: 20010402, end: 20020505
  2. MULTI-VITAMINS [Concomitant]
     Indication: DRUG USE FOR UNKNOWN INDICATION
  3. ANTIHYPERTENSIVES [Concomitant]
     Indication: DRUG USE FOR UNKNOWN INDICATION
  4. ESTRATEST H.S. [Concomitant]
     Indication: HORMONE REPLACEMENT THERAPY

REACTIONS (13)
  - AMNESIA [None]
  - DECREASED APPETITE [None]
  - DEPRESSION [None]
  - DRUG WITHDRAWAL SYNDROME [None]
  - GASTRIC HYPOMOTILITY [None]
  - HEADACHE [None]
  - HOSPITALISATION [None]
  - HYPERHIDROSIS [None]
  - IMPAIRED WORK ABILITY [None]
  - INSOMNIA [None]
  - NAUSEA [None]
  - TREMOR [None]
  - VOMITING [None]
